FAERS Safety Report 9645144 (Version 3)
Quarter: 2013Q4

REPORT INFORMATION
  Report Type: Report from Study
  Country: US (occurrence: US)
  Receive Date: 20131025
  Receipt Date: 20131106
  Transmission Date: 20140711
  Serious: Yes (Other)
  Sender: FDA-Public Use
  Company Number: US-JNJFOC-20130813839

PATIENT
  Sex: Female
  Weight: 68.04 kg

DRUGS (5)
  1. XARELTO [Suspect]
     Indication: THROMBOSIS PROPHYLAXIS
     Route: 048
     Dates: start: 201304, end: 201306
  2. TOPROL [Concomitant]
     Indication: HYPERTENSION
     Dosage: YEARS AGO
     Route: 048
  3. ZYRTEC-D [Concomitant]
     Indication: MULTIPLE ALLERGIES
     Dosage: ABOUT 5 YEARS AGO
     Route: 048
  4. ASPIRIN [Concomitant]
     Indication: PRODUCT USED FOR UNKNOWN INDICATION
     Dosage: ^THIRTY SOME YEARS AGO^
     Route: 048
  5. MULTIVITAMINS [Concomitant]
     Route: 065

REACTIONS (2)
  - Cardiac valve disease [Recovering/Resolving]
  - Rash erythematous [Not Recovered/Not Resolved]
